FAERS Safety Report 5914595-X (Version None)
Quarter: 2008Q4

REPORT INFORMATION
  Report Type: 
  Country: None (occurrence: None)
  Receive Date: 20081008
  Receipt Date: 20080923
  Transmission Date: 20090506
  Serious: Yes (Other)
  Sender: FDA-Public Use
  Company Number: 430062J08USA

PATIENT
  Age: 53 Year
  Sex: Female
  Weight: 48 kg

DRUGS (2)
  1. NOVANTRONE [Suspect]
     Indication: MULTIPLE SCLEROSIS
     Dosage: 12 MG/M2, 1 IN 3 MONTHS, INTRAVENOUS (NOT OTHERWISE SPECIFIED(
     Route: 042
     Dates: start: 20040101, end: 20060101
  2. INTRAVENOUS IMMUNOGLOBIN (IMMUNOGLOBULIN HUMAN NORMAL) [Concomitant]

REACTIONS (1)
  - CARDIAC FAILURE [None]
